FAERS Safety Report 5701185-7 (Version None)
Quarter: 2008Q2

REPORT INFORMATION
  Report Type: 
  Country: None (occurrence: None)
  Receive Date: 20080410
  Receipt Date: 20080331
  Transmission Date: 20081010
  Serious: Yes (Disabling)
  Sender: FDA-Public Use
  Company Number: BE-BOEHRINGER INGELHEIM GMBH, GERMANY-2008-BL-00087BL

PATIENT
  Age: 59 Year
  Sex: Female

DRUGS (2)
  1. COMBIVENT [Suspect]
     Indication: BRONCHITIS
     Dosage: 500MCG IPRATROPIUMBROMID/ 2,5MG SALBUTAMOL
     Route: 055
  2. LYSOMUCIL [Suspect]

REACTIONS (4)
  - EYE IRRITATION [None]
  - OCULAR HYPERTENSION [None]
  - SKIN EXFOLIATION [None]
  - VISUAL ACUITY REDUCED [None]
